FAERS Safety Report 4850054-3 (Version None)
Quarter: 2005Q4

REPORT INFORMATION
  Report Type: 
  Country: None (occurrence: None)
  Receive Date: 20051123
  Receipt Date: 20050301
  Transmission Date: 20060501
  Serious: Yes (Disabling)
  Sender: FDA-Public Use
  Company Number: 2004094728

PATIENT
  Age: 57 Year
  Sex: Male

DRUGS (5)
  1. LIPITOR [Suspect]
     Indication: HYPERCHOLESTEROLAEMIA
     Dosage: 10 MG (1 D), ORAL
     Route: 048
     Dates: start: 20030401, end: 20041201
  2. GARLIC (GARLIC) [Concomitant]
  3. OMEGA (CONVALLARIA MAJALIS, CRATAGEGUS, PROXYPHYLLINE) [Concomitant]
  4. ASPIRIN [Concomitant]
  5. SERENOA REPENS (SERENOA REPENS) [Concomitant]

REACTIONS (1)
  - AMNESIA [None]
